FAERS Safety Report 12497877 (Version 3)
Quarter: 2016Q3

REPORT INFORMATION
  Report Type: Spontaneous
  Country: GB (occurrence: GB)
  Receive Date: 20160625
  Receipt Date: 20160729
  Transmission Date: 20161109
  Serious: Yes (Other)
  Sender: FDA-Public Use
  Company Number: GB-APOTEX-2016AP009386

PATIENT
  Age: 52 Year
  Sex: Male

DRUGS (6)
  1. PAROXETINE. [Suspect]
     Active Substance: PAROXETINE
     Indication: PRODUCT USED FOR UNKNOWN INDICATION
     Dosage: 20 MG, DAILY
     Route: 065
     Dates: start: 20090520
  2. PAXIL [Suspect]
     Active Substance: PAROXETINE HYDROCHLORIDE
     Dosage: 40 MG, UNKNOWN
     Route: 065
  3. TEMAZEPAM. [Concomitant]
     Active Substance: TEMAZEPAM
     Indication: SLEEP DISORDER
     Dosage: 20 MG, Q.H.S.
     Route: 065
     Dates: start: 1992
  4. PAXIL [Suspect]
     Active Substance: PAROXETINE HYDROCHLORIDE
     Indication: DEPRESSION
     Dosage: UNK
     Route: 065
     Dates: start: 19990506
  5. PAXIL [Suspect]
     Active Substance: PAROXETINE HYDROCHLORIDE
     Dosage: 20 MG, QD
     Route: 065
     Dates: start: 1999
  6. PAROXETINE. [Suspect]
     Active Substance: PAROXETINE
     Dosage: 20 MG, QD
     Route: 065
     Dates: start: 20090527

REACTIONS (8)
  - Drug withdrawal syndrome [Unknown]
  - Irritability [Unknown]
  - Tremor [Unknown]
  - Aggression [Unknown]
  - Paraesthesia [Unknown]
  - Headache [Unknown]
  - Dizziness [Unknown]
  - Nausea [Unknown]

NARRATIVE: CASE EVENT DATE: 20050318
